FAERS Safety Report 7902290-7 (Version None)
Quarter: 2011Q4

REPORT INFORMATION
  Report Type: 
  Country: None (occurrence: None)
  Receive Date: 20111108
  Receipt Date: 20111104
  Transmission Date: 20120403
  Serious: Yes (Death, Other)
  Sender: FDA-Public Use
  Company Number: US-ABBOTT-11P-163-0871294-00

PATIENT
  Sex: Female
  Weight: 81.72 kg

DRUGS (3)
  1. HUMIRA [Suspect]
     Indication: RHEUMATOID ARTHRITIS
     Dates: end: 20100201
  2. UNKNOWN AMOUNT OF AN UNKNOWN ORAL MEDICATION [Suspect]
     Indication: PAIN
     Dates: start: 20100414, end: 20100414
  3. UNKNOWN ORAL MEDICATION [Concomitant]
     Indication: PRODUCT USED FOR UNKNOWN INDICATION

REACTIONS (8)
  - PAIN [None]
  - BRAIN INJURY [None]
  - UNRESPONSIVE TO STIMULI [None]
  - APHAGIA [None]
  - INTENTIONAL OVERDOSE [None]
  - RESPIRATORY ARREST [None]
  - APALLIC SYNDROME [None]
  - MEMORY IMPAIRMENT [None]
